FAERS Safety Report 4893065-4 (Version None)
Quarter: 2005Q4

REPORT INFORMATION
  Report Type: 
  Country: None (occurrence: None)
  Receive Date: 20051223
  Receipt Date: 20051017
  Transmission Date: 20060501
  Serious: Yes (Hospitalization, Other)
  Sender: FDA-Public Use
  Company Number: 218218

PATIENT
  Age: 55 Year
  Sex: Female
  Weight: 78 kg

DRUGS (5)
  1. AVASTIN [Suspect]
     Indication: BREAST CANCER METASTATIC
     Dosage: 800 MG, DAY 1 + 15 , INTRAVENOUS
     Route: 042
     Dates: start: 20050623, end: 20050826
  2. AMBIEN [Concomitant]
  3. PROTONIX [Concomitant]
  4. EFFEXOR [Concomitant]
  5. TAXOL [Concomitant]

REACTIONS (1)
  - PULMONARY EMBOLISM [None]
